FAERS Safety Report 8935795 (Version 6)
Quarter: 2014Q1

REPORT INFORMATION
  Report Type: Spontaneous
  Country: BR (occurrence: BR)
  Receive Date: 20121130
  Receipt Date: 20140203
  Transmission Date: 20141002
  Serious: Yes (Hospitalization, Disabling, Other)
  Sender: FDA-Public Use
  Company Number: BR-ASTELLAS-2012US011548

PATIENT
  Age: 42 Year
  Sex: Female
  Weight: 76 kg

DRUGS (7)
  1. TARCEVA [Suspect]
     Indication: LUNG CARCINOMA CELL TYPE UNSPECIFIED STAGE IV
     Dosage: 100 MG, UID/QD
     Route: 065
     Dates: start: 20120208
  2. TARCEVA [Suspect]
     Dosage: 100 MG, UID/QD
     Route: 065
     Dates: start: 201206, end: 201212
  3. TARCEVA [Suspect]
     Dosage: UNK
     Route: 065
  4. BEPANTOL [Concomitant]
     Indication: PRODUCT USED FOR UNKNOWN INDICATION
     Dosage: UNK
     Route: 065
  5. LOSARTAN [Concomitant]
     Indication: PRODUCT USED FOR UNKNOWN INDICATION
     Dosage: UNK
     Route: 065
  6. HYDROCHLOROTHIAZIDE [Concomitant]
     Indication: PRODUCT USED FOR UNKNOWN INDICATION
     Dosage: UNK
     Route: 065
  7. NISTATINA [Concomitant]
     Indication: PRODUCT USED FOR UNKNOWN INDICATION
     Dosage: UNK
     Route: 065

REACTIONS (20)
  - Gait disturbance [Not Recovered/Not Resolved]
  - Visual impairment [Not Recovered/Not Resolved]
  - Vision blurred [Not Recovered/Not Resolved]
  - Chest pain [Recovered/Resolved]
  - Corneal disorder [Not Recovered/Not Resolved]
  - Ulcerative keratitis [Recovered/Resolved with Sequelae]
  - Malignant neoplasm progression [Recovering/Resolving]
  - Joint range of motion decreased [Recovered/Resolved]
  - Axillary pain [Recovered/Resolved]
  - Burning sensation [Recovering/Resolving]
  - Swelling [Recovered/Resolved]
  - Groin pain [Recovered/Resolved]
  - Skin burning sensation [Recovered/Resolved]
  - Pruritus [Not Recovered/Not Resolved]
  - Rash pustular [Recovering/Resolving]
  - Rash pustular [Recovered/Resolved]
  - Rash [Recovered/Resolved]
  - Rash pustular [Recovered/Resolved]
  - Pruritus [Recovered/Resolved]
  - Decreased appetite [Not Recovered/Not Resolved]
